FAERS Safety Report 4284909-8 (Version None)
Quarter: 2004Q1

REPORT INFORMATION
  Report Type: 
  Country: None (occurrence: None)
  Receive Date: 20040202
  Receipt Date: 20040126
  Transmission Date: 20041129
  Serious: Yes (Other)
  Sender: FDA-Public Use
  Company Number: 844

PATIENT
  Sex: Female

DRUGS (1)
  1. ISOTRETINOIN (GENERIC NOT SPECIFIED) CAPSULES [Suspect]
     Dates: start: 20030401, end: 20030501

REACTIONS (1)
  - HEPATIC ENZYME INCREASED [None]
